FAERS Safety Report 14246001 (Version 2)
Quarter: 2018Q1

REPORT INFORMATION
  Report Type: Report from Study
  Country: US (occurrence: US)
  Receive Date: 20171204
  Receipt Date: 20180215
  Transmission Date: 20180508
  Serious: Yes (Other)
  Sender: FDA-Public Use
  Company Number: US-ROCHE-2017584

PATIENT
  Age: 77 Year
  Sex: Male
  Weight: 63.56 kg

DRUGS (1)
  1. ESBRIET [Suspect]
     Active Substance: PIRFENIDONE
     Indication: IDIOPATHIC PULMONARY FIBROSIS
     Route: 048
     Dates: start: 20171009, end: 20171120

REACTIONS (8)
  - Asthenia [Unknown]
  - Nausea [Recovered/Resolved]
  - Diarrhoea [Unknown]
  - Faeces discoloured [Unknown]
  - Gastric disorder [Unknown]
  - Fatigue [Recovered/Resolved]
  - Decreased appetite [Recovered/Resolved]
  - Dyspepsia [Unknown]

NARRATIVE: CASE EVENT DATE: 20171009
